FAERS Safety Report 4548520-3 (Version None)
Quarter: 2005Q1

REPORT INFORMATION
  Report Type: 
  Country: None (occurrence: None)
  Receive Date: 20050110
  Receipt Date: 20041230
  Transmission Date: 20050727
  Serious: Yes (Hospitalization)
  Sender: FDA-Public Use
  Company Number: FR-GLAXOSMITHKLINE-B0363554A

PATIENT
  Age: 28 Year
  Sex: Female

DRUGS (5)
  1. CLAMOXYL [Suspect]
     Indication: PHARYNGITIS
     Route: 048
     Dates: start: 20040502, end: 20040502
  2. ADVIL [Suspect]
     Indication: PHARYNGITIS
     Route: 048
     Dates: start: 20040502, end: 20040502
  3. EFFERALGAN [Suspect]
     Route: 048
     Dates: start: 20040502, end: 20040502
  4. NIFLURIL [Concomitant]
     Dosage: 1UNIT THREE TIMES PER DAY
     Route: 048
     Dates: start: 20040429, end: 20040501
  5. IBUPROFENE [Concomitant]
     Indication: PHARYNGITIS
     Dosage: 1UNIT TWICE PER DAY
     Route: 048
     Dates: start: 20040428

REACTIONS (15)
  - AGRANULOCYTOSIS [None]
  - ANTIBODY TEST POSITIVE [None]
  - BLOOD PRESSURE DIASTOLIC DECREASED [None]
  - BONE MARROW TOXICITY [None]
  - DERMATITIS BULLOUS [None]
  - EPSTEIN-BARR VIRUS ANTIBODY POSITIVE [None]
  - EXANTHEM [None]
  - INFLAMMATION [None]
  - NIKOLSKY'S SIGN [None]
  - PYREXIA [None]
  - RASH [None]
  - RASH PUSTULAR [None]
  - SKIN DISORDER [None]
  - SKIN NECROSIS [None]
  - TOXIC SKIN ERUPTION [None]
